FAERS Safety Report 7770634-5 (Version None)
Quarter: 2011Q3

REPORT INFORMATION
  Report Type: 
  Country: None (occurrence: None)
  Receive Date: 20110922
  Receipt Date: 20110919
  Transmission Date: 20111222
  Serious: Yes (Hospitalization, Other)
  Sender: FDA-Public Use
  Company Number: PHEH2008US06030

PATIENT
  Sex: Female
  Weight: 65.76 kg

DRUGS (30)
  1. ESTROPIPATE [Suspect]
  2. PERCOCET [Concomitant]
  3. VIVELLE [Suspect]
     Indication: HOT FLUSH
     Dosage: 0.1 MG, UNK
  4. PREVACID [Concomitant]
  5. PLAQUENIL [Concomitant]
     Dosage: 200 MG, DAILY
  6. MEGACE [Concomitant]
  7. AMOXICILLIN [Concomitant]
     Indication: RASH
     Dosage: 500 MG, TID
  8. FEXOFENADINE [Concomitant]
     Dosage: 180 MG, DAILY
  9. ARAVA [Concomitant]
  10. METHOTREXATE [Concomitant]
  11. HYDROXYCHLOROQUINE SULFATE [Concomitant]
  12. PREDNISONE [Concomitant]
     Indication: SYSTEMIC LUPUS ERYTHEMATOSUS
  13. PROCRIT                            /00909301/ [Concomitant]
     Dates: start: 20050901
  14. CHLOROQUINE [Concomitant]
     Dosage: 200 MG, DAILY
  15. AZATHIOPRINE [Concomitant]
     Dosage: 50 MG,
  16. PREMPRO [Suspect]
  17. CIMETIDINE [Concomitant]
  18. IMURAN [Concomitant]
     Dosage: 100 MG, DAILY
  19. POTASSIUM [Concomitant]
  20. LORTAB [Concomitant]
  21. TYLOX [Concomitant]
  22. POTASSIUM CHLORIDE [Concomitant]
  23. ACETAMINOPHEN AND HYDROCODONE BITARTRATE [Concomitant]
  24. ACIPHEX [Concomitant]
  25. VIVELLE [Suspect]
     Indication: HORMONE REPLACEMENT THERAPY
     Dosage: 0.05 MG
     Route: 062
  26. PREMARIN [Suspect]
  27. FOLIC ACID [Concomitant]
     Dosage: 1 MG, DAILY
  28. OGEN [Suspect]
  29. STEROIDS NOS [Concomitant]
  30. HYDROCHLOROTHIAZIDE [Concomitant]

REACTIONS (27)
  - LACUNAR INFARCTION [None]
  - URINARY TRACT INFECTION [None]
  - VERTIGO [None]
  - INSOMNIA [None]
  - OSTEOARTHRITIS [None]
  - WEIGHT DECREASED [None]
  - ERYTHEMA [None]
  - COUGH [None]
  - RENAL FAILURE ACUTE [None]
  - NIPPLE DISORDER [None]
  - VULVOVAGINAL CANDIDIASIS [None]
  - OEDEMA PERIPHERAL [None]
  - HYPONATRAEMIA [None]
  - ANAEMIA [None]
  - SEPSIS [None]
  - GASTROOESOPHAGEAL REFLUX DISEASE [None]
  - BREAST CELLULITIS [None]
  - URINARY INCONTINENCE [None]
  - DIZZINESS [None]
  - PAIN IN EXTREMITY [None]
  - SYNCOPE [None]
  - BREAST CANCER [None]
  - SKIN ULCER [None]
  - HYPERGLYCAEMIA [None]
  - BREAST DISCHARGE [None]
  - GAIT DISTURBANCE [None]
  - HOT FLUSH [None]
